FAERS Safety Report 6596411-9 (Version None)
Quarter: 2010Q1

REPORT INFORMATION
  Report Type: 
  Country: None (occurrence: None)
  Receive Date: 20100222
  Receipt Date: 20100222
  Transmission Date: 20100710
  Serious: Yes (Hospitalization)
  Sender: FDA-Public Use
  Company Number: None

PATIENT
  Sex: Male
  Weight: 60.1 kg

DRUGS (5)
  1. CYTARABINE [Suspect]
     Dosage: 70 MG
     Dates: end: 20091007
  2. MERCAPTOPURINE [Suspect]
     Dates: end: 20091103
  3. METHOTREXATE [Suspect]
     Dosage: 31.25 MG
     Dates: end: 20091028
  4. PREDNISONE [Suspect]
     Dosage: 30 MG
     Dates: end: 20091028
  5. VINCRISTINE SULFATE [Suspect]
     Dosage: 2 MG
     Dates: end: 20091007

REACTIONS (3)
  - BILIRUBIN CONJUGATED INCREASED [None]
  - CHOLELITHIASIS [None]
  - HYPERBILIRUBINAEMIA [None]
